FAERS Safety Report 26125177 (Version 1)
Quarter: 2025Q4

REPORT INFORMATION
  Report Type: Spontaneous
  Country: US (occurrence: US)
  Receive Date: 20251205
  Receipt Date: 20251205
  Transmission Date: 20260117
  Serious: Yes (Hospitalization, Other)
  Sender: GLENMARK
  Company Number: US-GLENMARK PHARMACEUTICALS-2025GMK106306

PATIENT

DRUGS (2)
  1. DESMOPRESSIN ACETATE [Suspect]
     Active Substance: DESMOPRESSIN ACETATE
     Indication: Product used for unknown indication
     Dosage: UNK
     Route: 065
  2. SETMELANOTIDE [Concomitant]
     Active Substance: SETMELANOTIDE
     Indication: Hypothalamic obesity
     Dosage: 0.5 MILLIGRAM, QD
     Route: 058

REACTIONS (3)
  - Drug intolerance [Unknown]
  - Hypernatraemia [Unknown]
  - Vomiting [None]
